FAERS Safety Report 8202815-0 (Version None)
Quarter: 2012Q1

REPORT INFORMATION
  Report Type: 
  Country: None (occurrence: None)
  Receive Date: 20120312
  Receipt Date: 20120312
  Transmission Date: 20120608
  Serious: Yes (Other)
  Sender: FDA-Public Use
  Company Number: None

PATIENT
  Age: 52 Year
  Sex: Female
  Weight: 74.842 kg

DRUGS (2)
  1. PROVENTIL-HFA [Suspect]
     Dosage: 1 TO 2 PUFFS EVERY 4 TO 6 HOUR
     Dates: start: 20120303, end: 20120308
  2. PROVENTIL-HFA [Concomitant]
     Dosage: 1 TO 2 PUFFS EVERY 4 TO 6 HOUR
     Dates: start: 20120303, end: 20120308

REACTIONS (3)
  - PRODUCT QUALITY ISSUE [None]
  - ECONOMIC PROBLEM [None]
  - DRUG INEFFECTIVE [None]
